FAERS Safety Report 10384181 (Version 1)
Quarter: 2014Q3

REPORT INFORMATION
  Report Type: Spontaneous
  Country: US (occurrence: None)
  Receive Date: 20140813
  Receipt Date: 20140813
  Transmission Date: 20150326
  Serious: Yes (Other)
  Sender: FDA-Public Use
  Company Number: None

PATIENT
  Age: 41 Year
  Sex: Female

DRUGS (1)
  1. NEULASTA [Suspect]
     Active Substance: PEGFILGRASTIM
     Indication: BREAST CANCER
     Dosage: 6 MG EVERY 21, DAYS, 24 SQ
     Route: 058
     Dates: start: 20140630

REACTIONS (5)
  - Feeling abnormal [None]
  - Feeling hot [None]
  - Abdominal pain upper [None]
  - Cold sweat [None]
  - Diarrhoea [None]

NARRATIVE: CASE EVENT DATE: 20140728
